FAERS Safety Report 5080688-5 (Version None)
Quarter: 2006Q3

REPORT INFORMATION
  Report Type: 
  Country: None (occurrence: None)
  Receive Date: 20060809
  Receipt Date: 20060801
  Transmission Date: 20061208
  Serious: Yes (Disabling)
  Sender: FDA-Public Use
  Company Number: 2006067007

PATIENT
  Age: 56 Year
  Sex: Female

DRUGS (2)
  1. LYRICA [Suspect]
     Indication: NEURALGIA
     Dosage: 150 MG (75 MG, 2 IN 1 D), ORAL
     Route: 048
     Dates: start: 20060208, end: 20060503
  2. DICLOFENAC SODIUM [Concomitant]

REACTIONS (13)
  - APHASIA [None]
  - ARTHRALGIA [None]
  - DISEASE RECURRENCE [None]
  - HEART RATE INCREASED [None]
  - INTERVERTEBRAL DISC PROTRUSION [None]
  - LARYNGEAL OEDEMA [None]
  - MUCOSAL DRYNESS [None]
  - OEDEMA PERIPHERAL [None]
  - PHARYNGOLARYNGEAL PAIN [None]
  - PRURITUS [None]
  - RED BLOOD CELL SEDIMENTATION RATE INCREASED [None]
  - SWELLING FACE [None]
  - THIRST [None]
